FAERS Safety Report 4844704-5 (Version None)
Quarter: 2005Q4

REPORT INFORMATION
  Report Type: 
  Country: None (occurrence: None)
  Receive Date: 20051128
  Receipt Date: 20051109
  Transmission Date: 20060501
  Serious: Yes (Death)
  Sender: FDA-Public Use
  Company Number: DSA_27375_2005

PATIENT
  Age: 34 Year
  Sex: Male

DRUGS (10)
  1. TRAMADOL WITH ACETAMINOPHEN [Suspect]
     Indication: PAIN
     Dosage: DF ONCE PO
     Route: 048
  2. TRAMADOL WITH ACETAMINOPHEN [Suspect]
     Indication: PAIN
     Dosage: DF PO
     Route: 048
  3. AMITRIPTYLINE HCL [Suspect]
     Indication: DEPRESSION
     Dosage: DF ONCE PO
     Route: 048
  4. AMITRIPTYLINE HCL [Suspect]
     Indication: DEPRESSION
     Dosage: DF PO
     Route: 048
  5. METAXALONE [Concomitant]
  6. OXYCODONE [Concomitant]
  7. IBUPROFEN [Concomitant]
  8. ACETAMINOPHEN [Concomitant]
  9. CYCLOBENZAPRINE [Concomitant]
  10. LIDOCAINE [Concomitant]

REACTIONS (6)
  - COMPLETED SUICIDE [None]
  - DRUG INTERACTION [None]
  - LOSS OF CONSCIOUSNESS [None]
  - MULTIPLE DRUG OVERDOSE [None]
  - PULMONARY CONGESTION [None]
  - RESUSCITATION [None]
